FAERS Safety Report 6183338-X (Version None)
Quarter: 2009Q2

REPORT INFORMATION
  Report Type: 
  Country: None (occurrence: None)
  Receive Date: 20090507
  Receipt Date: 20090427
  Transmission Date: 20091009
  Serious: Yes (Life-Threatening, Hospitalization)
  Sender: FDA-Public Use
  Company Number: JP-TYCO HEALTHCARE/MALLINCKRODT-T200900943

PATIENT
  Age: 81 Year
  Sex: Female

DRUGS (1)
  1. OPTIRAY 300 [Suspect]
     Indication: COMPUTERISED TOMOGRAM
     Dosage: 100 ML, SINGLE
     Route: 042
     Dates: start: 20090427, end: 20090427

REACTIONS (5)
  - DYSGEUSIA [None]
  - FEELING HOT [None]
  - HYPOAESTHESIA [None]
  - SHOCK [None]
  - TREMOR [None]
